FAERS Safety Report 22923013 (Version 4)
Quarter: 2024Q1

REPORT INFORMATION
  Report Type: Report from Study
  Country: CA (occurrence: CA)
  Receive Date: 20230908
  Receipt Date: 20240320
  Transmission Date: 20240410
  Serious: Yes (Other)
  Sender: FDA-Public Use
  Company Number: CA-CHIESI-2023CHF04189

PATIENT
  Age: 25 Year
  Sex: Female
  Weight: 56 kg

DRUGS (3)
  1. DEFERIPRONE [Suspect]
     Active Substance: DEFERIPRONE
     Indication: Thalassaemia beta
     Dosage: 2000 MILLIGRAM, BID
     Route: 048
  2. DEFERIPRONE [Suspect]
     Active Substance: DEFERIPRONE
     Dosage: 2000 MILLIGRAM, BID
     Route: 048
     Dates: start: 20230815, end: 20230825
  3. DESFERAL [Concomitant]
     Active Substance: DEFEROXAMINE MESYLATE
     Indication: Thalassaemia beta
     Dosage: UNK

REACTIONS (9)
  - Muscle contractions involuntary [Recovered/Resolved]
  - Dyspnoea [Recovered/Resolved]
  - White blood cell count decreased [Recovered/Resolved]
  - Tremor [Recovered/Resolved]
  - Pain [Recovered/Resolved]
  - Pain in extremity [Recovered/Resolved]
  - Nausea [Unknown]
  - White blood cell count decreased [Unknown]
  - Off label use [Recovered/Resolved]

NARRATIVE: CASE EVENT DATE: 20230815
